FAERS Safety Report 13647470 (Version 2)
Quarter: 2017Q3

REPORT INFORMATION
  Report Type: Spontaneous
  Country: US (occurrence: US)
  Receive Date: 20170613
  Receipt Date: 20170711
  Transmission Date: 20171127
  Serious: Yes (Hospitalization, Other)
  Sender: FDA-Public Use
  Company Number: US-SMITH AND NEPHEW, INC-2017SMT00416

PATIENT
  Age: 61 Year
  Sex: Male
  Weight: 88.44 kg

DRUGS (5)
  1. REGRANEX [Suspect]
     Active Substance: BECAPLERMIN
     Indication: POOR PERIPHERAL CIRCULATION
  2. TRIAMCINOLONE [Suspect]
     Active Substance: TRIAMCINOLONE
     Indication: SKIN BACTERIAL INFECTION
     Dosage: UNK
     Dates: start: 20170526
  3. CIPRO [Suspect]
     Active Substance: CIPROFLOXACIN HYDROCHLORIDE
     Indication: SKIN BACTERIAL INFECTION
     Dosage: UNK
     Dates: start: 20170526
  4. UNSPECIFIED MEDICATIONS [Concomitant]
     Active Substance: UNSPECIFIED INGREDIENT
  5. REGRANEX [Suspect]
     Active Substance: BECAPLERMIN
     Indication: DIABETIC ULCER
     Dosage: UNK UNK, 1X/DAY FOR 12 HOURS ON AND 12 HOURS OFF
     Route: 061
     Dates: start: 20170407, end: 20170414

REACTIONS (4)
  - Blood glucose increased [Unknown]
  - Sepsis [Recovered/Resolved]
  - Cellulitis [Recovered/Resolved]
  - Skin bacterial infection [Not Recovered/Not Resolved]

NARRATIVE: CASE EVENT DATE: 201704
